FAERS Safety Report 4883184-0 (Version None)
Quarter: 2006Q1

REPORT INFORMATION
  Report Type: 
  Country: None (occurrence: None)
  Receive Date: 20060117
  Receipt Date: 20060117
  Transmission Date: 20060701
  Serious: Yes (Hospitalization)
  Sender: FDA-Public Use
  Company Number: None

PATIENT
  Sex: Female

DRUGS (6)
  1. BUMETANIDE [Suspect]
     Indication: OEDEMA
     Dosage: ONE DAILY
     Dates: start: 20051220, end: 20060103
  2. CYMBALTA [Concomitant]
  3. NORVASC [Concomitant]
  4. LEVOXYL [Concomitant]
  5. ACIPHEX [Concomitant]
  6. LIMBREL [Concomitant]

REACTIONS (6)
  - DIFFICULTY IN WALKING [None]
  - DRUG INEFFECTIVE [None]
  - JOINT SWELLING [None]
  - PAIN IN EXTREMITY [None]
  - PHARMACEUTICAL PRODUCT COMPLAINT [None]
  - TENDERNESS [None]
